FAERS Safety Report 5657974-0 (Version None)
Quarter: 2008Q1

REPORT INFORMATION
  Report Type: 
  Country: None (occurrence: None)
  Receive Date: 20080310
  Receipt Date: 20080303
  Transmission Date: 20080703
  Serious: Yes (Other)
  Sender: FDA-Public Use
  Company Number: PHHY2008AU02517

PATIENT
  Age: 70 Year
  Sex: Female

DRUGS (7)
  1. COMTAN [Suspect]
     Indication: DRUG EFFECT DECREASED
     Dosage: UNK, UNK
     Dates: start: 20060101, end: 20071218
  2. COMTAN [Suspect]
     Dates: start: 20070501
  3. SINEMET [Concomitant]
  4. ALPRAZOLAM [Concomitant]
     Dosage: 1 MG, DAILY
  5. LIPITOR [Concomitant]
     Dosage: 40 MG, DAILY
  6. ASPIRIN [Concomitant]
     Dosage: 50 MG, DAILY
  7. COVERSYL [Concomitant]
     Dosage: 1.25 MG, DAILY

REACTIONS (2)
  - COLITIS [None]
  - DIARRHOEA [None]
